FAERS Safety Report 10374747 (Version 1)
Quarter: 2014Q3

REPORT INFORMATION
  Report Type: Spontaneous
  Country: US (occurrence: US)
  Receive Date: 20140811
  Receipt Date: 20140811
  Transmission Date: 20150326
  Serious: Yes (Other)
  Sender: FDA-Public Use
  Company Number: US-JNJFOC-20140720345

PATIENT
  Age: 69 Year
  Sex: Female

DRUGS (3)
  1. MEPERIDINE [Suspect]
     Active Substance: MEPERIDINE
     Indication: PAIN
     Route: 065
  2. PACLITAXEL. [Suspect]
     Active Substance: PACLITAXEL
     Indication: CHONDROSARCOMA
     Route: 065
  3. FENTANYL. [Suspect]
     Active Substance: FENTANYL
     Indication: PAIN
     Route: 065

REACTIONS (1)
  - Serotonin syndrome [Unknown]
